FAERS Safety Report 12648874 (Version 1)
Quarter: 2016Q3

REPORT INFORMATION
  Report Type: Spontaneous
  Country: PT (occurrence: PT)
  Receive Date: 20160812
  Receipt Date: 20160812
  Transmission Date: 20161109
  Serious: Yes (Death)
  Sender: FDA-Public Use
  Company Number: PT-SA-2016SA121766

PATIENT
  Age: 83 Year
  Sex: Male

DRUGS (1)
  1. PLAVIX [Suspect]
     Active Substance: CLOPIDOGREL BISULFATE
     Indication: PLATELET AGGREGATION INHIBITION
     Route: 048
     Dates: start: 201601, end: 201607

REACTIONS (7)
  - Anaemia [Fatal]
  - Pallor [Fatal]
  - Diarrhoea [Unknown]
  - Respiratory tract infection [Fatal]
  - General physical health deterioration [Fatal]
  - Condition aggravated [Fatal]
  - Asthenia [Fatal]

NARRATIVE: CASE EVENT DATE: 201606
